FAERS Safety Report 5066386-2 (Version None)
Quarter: 2006Q3

REPORT INFORMATION
  Report Type: 
  Country: None (occurrence: None)
  Receive Date: 20060801
  Receipt Date: 20060726
  Transmission Date: 20061208
  Serious: Yes (Death)
  Sender: FDA-Public Use
  Company Number: GB-AVENTIS-200617865GDDC

PATIENT
  Age: 46 Year
  Sex: Female

DRUGS (1)
  1. ARAVA [Suspect]
     Route: 048
     Dates: start: 20060406

REACTIONS (2)
  - MULTI-ORGAN FAILURE [None]
  - PNEUMONIA [None]
